FAERS Safety Report 4374109-5 (Version None)
Quarter: 2004Q2

REPORT INFORMATION
  Report Type: 
  Country: None (occurrence: None)
  Receive Date: 20040602
  Receipt Date: 20040325
  Transmission Date: 20050107
  Serious: Yes (Death, Hospitalization)
  Sender: FDA-Public Use
  Company Number: 1572

PATIENT
  Age: 56 Year
  Sex: Male
  Weight: 104.3273 kg

DRUGS (6)
  1. AVINZA [Suspect]
     Indication: BONE PAIN
     Dosage: 60 MG QD PO
     Route: 048
     Dates: start: 20030701
  2. AVINZA [Suspect]
     Indication: BONE PAIN
     Dosage: 120 MG QD PO
     Route: 048
  3. AVINZA [Suspect]
     Indication: BONE PAIN
     Dosage: 180 MG QD PO
     Route: 048
  4. AVINZA [Suspect]
     Indication: BONE PAIN
     Dosage: 120 MG QD PO
     Route: 048
  5. BICALUTAMIDE [Concomitant]
  6. UNSPECIFIED BOWEL PREPARATION [Concomitant]

REACTIONS (3)
  - BRAIN OEDEMA [None]
  - DISSEMINATED INTRAVASCULAR COAGULATION [None]
  - HERNIA [None]
